FAERS Safety Report 18931708 (Version 1)
Quarter: 2021Q1

REPORT INFORMATION
  Report Type: Report from Study
  Country: BR (occurrence: BR)
  Receive Date: 20210224
  Receipt Date: 20210224
  Transmission Date: 20210420
  Serious: Yes (Other)
  Sender: FDA-Public Use
  Company Number: BR-JNJFOC-20210233948

PATIENT
  Age: 65 Year
  Sex: Female
  Weight: 86 kg

DRUGS (1)
  1. REMICADE [Suspect]
     Active Substance: INFLIXIMAB
     Indication: RHEUMATOID ARTHRITIS
     Route: 042
     Dates: start: 20201105

REACTIONS (1)
  - COVID-19 pneumonia [Unknown]

NARRATIVE: CASE EVENT DATE: 20210202
